FAERS Safety Report 19443220 (Version 2)
Quarter: 2021Q3

REPORT INFORMATION
  Report Type: Spontaneous
  Country: ES (occurrence: ES)
  Receive Date: 20210621
  Receipt Date: 20210706
  Transmission Date: 20211014
  Serious: Yes (Life-Threatening, Hospitalization, Other)
  Sender: FDA-Public Use
  Company Number: ES-BAYER-2021-154245

PATIENT
  Age: 32 Year
  Sex: Female

DRUGS (1)
  1. MOXIFLOXACIN ORAL [Suspect]
     Active Substance: MOXIFLOXACIN
     Indication: ATYPICAL PNEUMONIA
     Dosage: 400 MILLIGRAM, QD
     Route: 048

REACTIONS (8)
  - Miosis [Unknown]
  - Pneumonia [Unknown]
  - Mydriasis [Unknown]
  - Iridocyclitis [None]
  - Influenza B virus test positive [Unknown]
  - Acute respiratory distress syndrome [Unknown]
  - Conjunctival hyperaemia [Unknown]
  - Iris transillumination defect [Unknown]
